FAERS Safety Report 9226880 (Version 1)
Quarter: 2013Q2

REPORT INFORMATION
  Report Type: Spontaneous
  Country: US (occurrence: US)
  Receive Date: 20130412
  Receipt Date: 20130412
  Transmission Date: 20140414
  Serious: Yes (Other)
  Sender: FDA-Public Use
  Company Number: US-JNJFOC-20130404724

PATIENT
  Age: 20 Year
  Sex: Female

DRUGS (1)
  1. PANCREAZE DR [Suspect]
     Indication: CYSTIC FIBROSIS
     Dosage: 10500 U
     Route: 048

REACTIONS (4)
  - Staphylococcus test [Unknown]
  - Abdominal discomfort [Unknown]
  - Eating disorder [Unknown]
  - Expired drug administered [Unknown]
